FAERS Safety Report 7404419-6 (Version None)
Quarter: 2011Q2

REPORT INFORMATION
  Report Type: 
  Country: None (occurrence: None)
  Receive Date: 20110408
  Receipt Date: 20110325
  Transmission Date: 20111010
  Serious: Yes (Death)
  Sender: FDA-Public Use
  Company Number: AU-GENENTECH-315925

PATIENT
  Sex: Male

DRUGS (1)
  1. LUCENTIS [Suspect]
     Indication: MACULAR DEGENERATION
     Dosage: 0.05 ML, UNKNOWN
     Route: 031
     Dates: start: 20100801, end: 20101201

REACTIONS (3)
  - HEPATIC CANCER METASTATIC [None]
  - RECTAL CANCER METASTATIC [None]
  - NEOPLASM MALIGNANT [None]
